FAERS Safety Report 24933179 (Version 1)
Quarter: 2025Q1

REPORT INFORMATION
  Report Type: Report from Study
  Country: US (occurrence: US)
  Receive Date: 20250206
  Receipt Date: 20250206
  Transmission Date: 20250408
  Serious: Yes (Other)
  Sender: AUROBINDO
  Company Number: US-AUROBINDO-AUR-APL-2025-005404

PATIENT
  Age: 65 Year
  Sex: Female

DRUGS (8)
  1. CARBOPLATIN [Suspect]
     Active Substance: CARBOPLATIN
     Indication: Lung adenocarcinoma stage IV
     Route: 065
  2. PEMETREXED [Suspect]
     Active Substance: PEMETREXED
     Indication: Lung adenocarcinoma stage IV
     Route: 065
  3. ENTRECTINIB [Suspect]
     Active Substance: ENTRECTINIB
     Indication: Lung adenocarcinoma stage IV
     Route: 065
  4. ENTRECTINIB [Suspect]
     Active Substance: ENTRECTINIB
     Indication: Metastases to central nervous system
  5. BEVACIZUMAB [Suspect]
     Active Substance: BEVACIZUMAB
     Indication: Lung adenocarcinoma stage IV
     Route: 065
  6. REPOTRECTINIB [Concomitant]
     Active Substance: REPOTRECTINIB
     Indication: Lung adenocarcinoma stage IV
     Route: 065
  7. NVL 520 [Concomitant]
     Indication: Metastases to central nervous system
     Dosage: 50 MILLIGRAM, ONCE A DAY
     Route: 065
  8. NVL 520 [Concomitant]
     Dosage: 75 MILLIGRAM, ONCE A DAY AFTER 12 WEEKS
     Route: 065

REACTIONS (1)
  - Drug ineffective [Unknown]
